FAERS Safety Report 8447076-2 (Version None)
Quarter: 2012Q2

REPORT INFORMATION
  Report Type: 
  Country: None (occurrence: None)
  Receive Date: 20120612
  Receipt Date: 20120607
  Transmission Date: 20120825
  Serious: Yes (Disabling)
  Sender: FDA-Public Use
  Company Number: GER/UKI/12/0024601

PATIENT
  Age: 83 Year
  Sex: Female
  Weight: 50 kg

DRUGS (3)
  1. CLOPIDEGREL [Suspect]
     Indication: PRODUCT USED FOR UNKNOWN INDICATION
     Dosage: 75 MG, 1 IN 1 D, ORAL
     Route: 048
     Dates: start: 20120504, end: 20120518
  2. SIMVASTATIN [Suspect]
     Indication: PRODUCT USED FOR UNKNOWN INDICATION
     Dosage: 40 MG, 1 IN 1 D, ORAL
     Route: 048
     Dates: start: 20120504, end: 20120518
  3. CITALOPRAM HYDROBROMIDE [Concomitant]

REACTIONS (5)
  - ANXIETY [None]
  - CEREBRAL INFARCTION [None]
  - PANIC ATTACK [None]
  - CONDITION AGGRAVATED [None]
  - DRUG EFFECT INCREASED [None]
